FAERS Safety Report 22290533 (Version 1)
Quarter: 2023Q2

REPORT INFORMATION
  Report Type: Spontaneous
  Country: US (occurrence: US)
  Receive Date: 20230505
  Receipt Date: 20230505
  Transmission Date: 20230721
  Serious: No
  Sender: FDA-Public Use
  Company Number: US-GALDERMA-US2023005603

PATIENT

DRUGS (6)
  1. PROACTIV MD ADAPALENE ACNE TREATMENT [Suspect]
     Active Substance: ADAPALENE
     Indication: Acne pustular
     Dosage: 1 DOSAGE FORM, QOD, EVERY OTHER NIGHT, PEA SIZED AMOUNT
     Route: 061
     Dates: start: 202302, end: 20230407
  2. PROACTIV CLEAR SKIN SPF 30 [Concomitant]
     Active Substance: AVOBENZONE\OCTISALATE\OCTOCRYLENE
     Indication: Acne pustular
     Dosage: 1 DOSAGE FORM, BID, 2 OR MORE TIMES A DAY, ABOUT A PEA SIZE
     Route: 061
     Dates: start: 202302, end: 20230407
  3. Proactiv MD Ultra Gentle Cleanser [Concomitant]
     Indication: Acne pustular
     Dosage: 1 DOSAGE FORM, BID, 2 OR MORE TIMES A DAY, PEA SIZE
     Route: 061
     Dates: start: 202302, end: 20230407
  4. Proactiv MD Ultra Hydrating Moisturizer [Concomitant]
     Indication: Acne pustular
     Dosage: 1 DOSAGE FORM, BID, 2 OR MORE TIMES A DAY, PEA SIZE
     Route: 061
     Dates: start: 202302, end: 20230407
  5. PROACTIV ACNE BODY WASH [Concomitant]
     Active Substance: SALICYLIC ACID
     Indication: Acne pustular
     Dosage: 1 DOSAGE FORM, BID, 2 OR MORE TIMES A DAY, PEA SIZE
     Route: 061
     Dates: start: 202302, end: 20230407
  6. PROACTIV BLACKHEAD DISSOLVING [Concomitant]
     Active Substance: SALICYLIC ACID
     Indication: Acne pustular
     Dosage: 1 DOSAGE FORM, BID, 2 OR MORE TIMES A DAY, PEA SIZE
     Route: 061
     Dates: start: 202302, end: 20230407

REACTIONS (4)
  - Acne [Not Recovered/Not Resolved]
  - Product use in unapproved indication [Recovered/Resolved]
  - Inappropriate schedule of product administration [Recovered/Resolved]
  - Underdose [Recovered/Resolved]

NARRATIVE: CASE EVENT DATE: 20230201
